FAERS Safety Report 23805648 (Version 1)
Quarter: 2024Q2

REPORT INFORMATION
  Report Type: Spontaneous
  Country: AU (occurrence: AU)
  Receive Date: 20240502
  Receipt Date: 20240502
  Transmission Date: 20240716
  Serious: No
  Sender: FDA-Public Use
  Company Number: AU-ALKEM LABORATORIES LIMITED-AU-ALKEM-2024-02342

PATIENT
  Sex: Female

DRUGS (2)
  1. LIDOCAINE [Suspect]
     Active Substance: LIDOCAINE
     Indication: Breast cancer
     Dosage: UNK (INFUSION) SERUM LIDOCAINE LEVEL WAS 2.65 MICROGRAM/MILLILITER (50 ML (LIDOCAINE 2 PERCENT OR SA
     Route: 042
  2. LIDOCAINE [Suspect]
     Active Substance: LIDOCAINE
     Indication: Surgery
     Dosage: UNK (INFUSION) SERUM LIDOCAINE LEVEL WAS 2.65 MICROGRAM/MILLILITER (20 ML (LIDOCAINE 10 PERCENT OR S
     Route: 058

REACTIONS (3)
  - Dysgeusia [Unknown]
  - Dizziness [Unknown]
  - Visual impairment [Unknown]
